FAERS Safety Report 6333812-8 (Version None)
Quarter: 2009Q3

REPORT INFORMATION
  Report Type: 
  Country: None (occurrence: None)
  Receive Date: 20090829
  Receipt Date: 20090615
  Transmission Date: 20100115
  Serious: No
  Sender: FDA-Public Use
  Company Number: US-ABBOTT-09P-163-0579820-00

PATIENT
  Sex: Male
  Weight: 110.32 kg

DRUGS (4)
  1. SIMCOR [Suspect]
     Indication: BLOOD CHOLESTEROL INCREASED
     Dosage: 500/20 EVERY NIGHT
     Dates: start: 20090601, end: 20090601
  2. CIRCULATION MEDICATION [Concomitant]
     Indication: DRUG USE FOR UNKNOWN INDICATION
  3. DIABETES MELLITUS MEDICATION [Concomitant]
     Indication: DIABETES MELLITUS
  4. ANTIBIOTIC [Concomitant]
     Indication: LOCALISED INFECTION

REACTIONS (1)
  - FLUSHING [None]
